FAERS Safety Report 8089449-6 (Version None)
Quarter: 2012Q1

REPORT INFORMATION
  Report Type: 
  Country: None (occurrence: None)
  Receive Date: 20120128
  Receipt Date: 20110628
  Transmission Date: 20120608
  Serious: No
  Sender: FDA-Public Use
  Company Number: US-ABBOTT-11P-163-0834896-00

PATIENT
  Age: 57 Year
  Sex: Male

DRUGS (7)
  1. HUMIRA [Suspect]
     Indication: COLITIS ULCERATIVE
     Route: 058
     Dates: start: 20110501
  2. HUMIRA [Suspect]
     Indication: ARTHROPATHY
  3. AZULFIDINE [Concomitant]
     Indication: ARTHROPATHY
  4. AZULFIDINE [Concomitant]
     Indication: CROHN'S DISEASE
  5. HUMIRA [Suspect]
     Indication: CROHN'S DISEASE
  6. PREDNISONE TAB [Concomitant]
     Indication: CROHN'S DISEASE
  7. PREDNISONE TAB [Concomitant]
     Indication: ARTHROPATHY

REACTIONS (1)
  - DRUG EFFECT DECREASED [None]
